FAERS Safety Report 4972650-5 (Version None)
Quarter: 2006Q1

REPORT INFORMATION
  Report Type: 
  Country: None (occurrence: None)
  Receive Date: 20060216
  Receipt Date: 20051031
  Transmission Date: 20060701
  Serious: Yes (Hospitalization)
  Sender: FDA-Public Use
  Company Number: 200510IM000683

PATIENT
  Age: 73 Year
  Sex: Male
  Weight: 86 kg

DRUGS (5)
  1. BLINDED THERAPY (INTERFERON GAMMA-1B) [Suspect]
     Indication: IDIOPATHIC PULMONARY FIBROSIS
     Dosage: 200 ML, TIW, SUBCUTANEOUS
     Route: 058
     Dates: start: 20040618
  2. NAPROXEN SODIUM [Concomitant]
  3. LEUPROLIDE ACETATE [Concomitant]
  4. FEMPRO COUMON [Concomitant]
  5. CACIT D3 1000/500 [Concomitant]

REACTIONS (3)
  - CARDIAC FAILURE [None]
  - PULMONARY OEDEMA [None]
  - RESPIRATORY TRACT INFECTION [None]
